FAERS Safety Report 4944101-8 (Version None)
Quarter: 2006Q1

REPORT INFORMATION
  Report Type: 
  Country: None (occurrence: None)
  Receive Date: 20060309
  Receipt Date: 20060221
  Transmission Date: 20060701
  Serious: Yes (Hospitalization)
  Sender: FDA-Public Use
  Company Number: 2005-02290

PATIENT
  Age: 57 Year
  Sex: Female

DRUGS (22)
  1. VELCADE [Suspect]
     Indication: MULTIPLE MYELOMA
     Dosage: 1.30 MG/M2, INTRAVENOUS
     Route: 042
     Dates: start: 20050628, end: 20050930
  2. SCIO-469() CAPSULE [Suspect]
     Indication: MULTIPLE MYELOMA
     Dosage: 60.00 MG, TID, ORAL
     Route: 048
     Dates: start: 20050628, end: 20051005
  3. LEVAQUIN [Concomitant]
  4. AMPICILLIN SODIUM [Concomitant]
  5. CEFTAZIDIME [Concomitant]
  6. METRONIDAZOLE [Concomitant]
  7. MULTIVITAMINS (ERGOCALCIFEROL, PANTHENOL, NICOTINAMIDE, RIBOFLAVIN, TH [Concomitant]
  8. LORAZEPAM [Concomitant]
  9. VICODIN [Concomitant]
  10. PROZAC [Concomitant]
  11. RISPERIDONE [Concomitant]
  12. CALTRATE (CALCIUM CARBONATE) [Concomitant]
  13. ASPIRIN [Concomitant]
  14. PROPACET 100 [Concomitant]
  15. COMPAZINE [Concomitant]
  16. ZOFRAN [Concomitant]
  17. LAXATIVES [Concomitant]
  18. MYLANTA (MAGNESIUM HYDROXIDE, SIMETICONE, ALUMINIUM HYDROXIDE GEL, DRI [Concomitant]
  19. PSEUDOEPHEDRINE HCL [Concomitant]
  20. GUAIFENESIN [Concomitant]
  21. SUDAFED 12 HOUR [Concomitant]
  22. ACETAMINOPHEN [Concomitant]

REACTIONS (8)
  - ASTHENIA [None]
  - CLOSTRIDIUM COLITIS [None]
  - DEHYDRATION [None]
  - DIZZINESS [None]
  - PAIN [None]
  - PYREXIA [None]
  - SUPRAPUBIC PAIN [None]
  - THERAPY NON-RESPONDER [None]
